FAERS Safety Report 22294424 (Version 1)
Quarter: 2023Q2

REPORT INFORMATION
  Report Type: Spontaneous
  Country: US (occurrence: None)
  Receive Date: 20230505
  Receipt Date: 20230505
  Transmission Date: 20230722
  Serious: No
  Sender: FDA-Public Use
  Company Number: None

PATIENT
  Age: 73 Year
  Sex: Female
  Weight: 68.49 kg

DRUGS (2)
  1. ENBREL [Suspect]
     Active Substance: ETANERCEPT
     Indication: Arthritis enteropathic
     Dosage: FREQUENCY : WEEKLY;?
     Route: 058
     Dates: start: 202212
  2. ENBREL [Suspect]
     Active Substance: ETANERCEPT
     Indication: Sacroiliitis

REACTIONS (6)
  - Cough [None]
  - Pyrexia [None]
  - Infection [None]
  - Fatigue [None]
  - Pain in extremity [None]
  - Inflammation [None]
